FAERS Safety Report 24563030 (Version 1)
Quarter: 2024Q4

REPORT INFORMATION
  Report Type: Spontaneous
  Country: US (occurrence: US)
  Receive Date: 20241030
  Receipt Date: 20241030
  Transmission Date: 20250115
  Serious: Yes (Life-Threatening, Hospitalization)
  Sender: STRIDES
  Company Number: US-STRIDES ARCOLAB LIMITED-2023SP014924

PATIENT
  Age: 55 Year
  Sex: Female

DRUGS (7)
  1. ALPRAZOLAM [Suspect]
     Active Substance: ALPRAZOLAM
     Indication: Seizure prophylaxis
     Dosage: 0.5 MILLIGRAM
     Route: 065
  2. ALPRAZOLAM [Suspect]
     Active Substance: ALPRAZOLAM
     Indication: Anxiolytic therapy
  3. EPINEPHRINE [Concomitant]
     Active Substance: EPINEPHRINE
     Indication: Product used for unknown indication
     Dosage: 1.5 MILLILITER (1L SODIUM-CHLORIDE SOLUTION INFUSED WITH LIDOCAINE, EPINEPHRINE AND SODIUM BICARBONA
     Route: 065
  4. LIDOCAINE [Concomitant]
     Active Substance: LIDOCAINE
     Indication: Anaesthesia
     Dosage: 100 MILLILITER (1L SODIUM-CHLORIDE SOLUTION INFUSED WITH LIDOCAINE WITH MAXIMUM DOSAGE OF 17.8 MG/KG
     Route: 065
  5. SODIUM CHLORIDE [Concomitant]
     Active Substance: SODIUM CHLORIDE
     Indication: Vehicle solution use
     Dosage: 1 LITER (1L SODIUM-CHLORIDE SOLUTION INFUSED WITH LIDOCAINE, EPINEPHRINE AND SODIUM BICARBONATE) (IN
     Route: 065
  6. NITROUS OXIDE [Concomitant]
     Active Substance: NITROUS OXIDE
     Indication: Anxiolytic therapy
     Dosage: UNK (ONE BREATHE)
     Route: 065
  7. SODIUM BICARBONATE [Concomitant]
     Active Substance: SODIUM BICARBONATE
     Indication: Product used for unknown indication
     Dosage: 15 MILLILITER (1L SODIUM-CHLORIDE SOLUTION INFUSED WITH LIDOCAINE, EPINEPHRINE AND SODIUM BICARBONAT
     Route: 065

REACTIONS (1)
  - Drug ineffective for unapproved indication [Unknown]
